FAERS Safety Report 18429327 (Version 2)
Quarter: 2025Q3

REPORT INFORMATION
  Report Type: Spontaneous
  Country: EU (occurrence: EU)
  Receive Date: 20201027
  Receipt Date: 20250901
  Transmission Date: 20251021
  Serious: Yes (Hospitalization, Other)
  Sender: AUROBINDO
  Company Number: EU-002147023-NVSC2020ES274715

PATIENT
  Age: 52 Year
  Sex: Male

DRUGS (2)
  1. EFAVIRENZ [Suspect]
     Active Substance: EFAVIRENZ
     Indication: HIV infection
     Dosage: 400 MILLIGRAM, ONCE A DAY
     Route: 065
  2. METHADONE [Concomitant]
     Active Substance: METHADONE HYDROCHLORIDE
     Indication: Drug dependence
     Dosage: 15 MILLIGRAM, ONCE A DAY
     Route: 065

REACTIONS (8)
  - Hallucination, auditory [Unknown]
  - Atrophy [Unknown]
  - Central nervous system lesion [Unknown]
  - Insomnia [Recovered/Resolved]
  - Suicidal ideation [Recovered/Resolved]
  - Mania [Recovered/Resolved]
  - Psychotic behaviour [Recovered/Resolved]
  - Delusional perception [Recovered/Resolved]
